FAERS Safety Report 5514155-9 (Version None)
Quarter: 2007Q4

REPORT INFORMATION
  Report Type: 
  Country: None (occurrence: None)
  Receive Date: 20071106
  Receipt Date: 20061110
  Transmission Date: 20080405
  Serious: Yes (Other)
  Sender: FDA-Public Use
  Company Number: US200611002077

PATIENT
  Age: 60 Year
  Sex: Female

DRUGS (2)
  1. PROZAC [Suspect]
     Dosage: ORAL
     Route: 048
  2. WELLBUTRIN [Concomitant]

REACTIONS (1)
  - CONVULSION [None]
